FAERS Safety Report 5888763-X (Version None)
Quarter: 2008Q3

REPORT INFORMATION
  Report Type: 
  Country: None (occurrence: None)
  Receive Date: 20080916
  Receipt Date: 20080916
  Transmission Date: 20090109
  Serious: No
  Sender: FDA-Public Use
  Company Number: None

PATIENT
  Sex: Male
  Weight: 88.4514 kg

DRUGS (1)
  1. PROTONIX [Suspect]
     Indication: GALLBLADDER OPERATION
     Dosage: 40 MG ONCE DAILY PO
     Route: 048
     Dates: start: 20060801, end: 20080201

REACTIONS (2)
  - INTRAOCULAR PRESSURE INCREASED [None]
  - MUSCLE SPASMS [None]
